FAERS Safety Report 15418203 (Version 1)
Quarter: 2018Q3

REPORT INFORMATION
  Report Type: Spontaneous
  Country: US (occurrence: US)
  Receive Date: 20180924
  Receipt Date: 20180924
  Transmission Date: 20181010
  Serious: Yes (Hospitalization)
  Sender: FDA-Public Use
  Company Number: US-OTSUKA-2018_031206

PATIENT
  Sex: Female

DRUGS (3)
  1. REXULTI [Suspect]
     Active Substance: BREXPIPRAZOLE
     Indication: ADJUVANT THERAPY
     Dosage: UNK
     Route: 065
     Dates: start: 201803
  2. PRISTIQ EXTENDED?RELEASE [Concomitant]
     Active Substance: DESVENLAFAXINE SUCCINATE
     Indication: PRODUCT USED FOR UNKNOWN INDICATION
     Dosage: UNK
     Route: 065
  3. REXULTI [Suspect]
     Active Substance: BREXPIPRAZOLE
     Indication: MAJOR DEPRESSION
     Dosage: 3 MG, QD
     Route: 048
     Dates: start: 201802, end: 201802

REACTIONS (11)
  - Influenza like illness [Not Recovered/Not Resolved]
  - Drug dose omission [Unknown]
  - Emotional disorder [Not Recovered/Not Resolved]
  - Feeling abnormal [Not Recovered/Not Resolved]
  - Pain [Not Recovered/Not Resolved]
  - Life support [Recovered/Resolved]
  - Withdrawal syndrome [Not Recovered/Not Resolved]
  - Hypersomnia [Not Recovered/Not Resolved]
  - Headache [Not Recovered/Not Resolved]
  - Incorrect dose administered [Unknown]
  - Therapy cessation [Unknown]

NARRATIVE: CASE EVENT DATE: 201802
